FAERS Safety Report 9842418 (Version 1)
Quarter: 2013Q4

REPORT INFORMATION
  Report Type: Spontaneous
  Country: US (occurrence: None)
  Receive Date: 20131219
  Receipt Date: 20131219
  Transmission Date: 20140711
  Serious: Yes (Other)
  Sender: FDA-Public Use
  Company Number: 163-20785-13014546

PATIENT
  Age: 76 Year
  Sex: Male

DRUGS (7)
  1. THALOMID (THALIDOMIDE) (100 MILLIGRAM, CAPSULES) [Suspect]
     Indication: PLASMA CELL MYELOMA
     Dosage: 100 MG, 1 IN 1 D, PO
     Route: 048
     Dates: start: 20121128
  2. VELCADE (BORTEZOMIB) [Suspect]
     Indication: PLASMA CELL MYELOMA
  3. METFORMIN (METFORMIN) (UNKNOWN) [Concomitant]
  4. GLYBURIDE (GLIBENCLAMIDE0 (UNKNOWN) [Concomitant]
  5. SIMVASTATIN (SIMVASTATIN) (UNKNOWN) [Concomitant]
  6. FLOMAX (TAMSULOSIN HYDROCHLORIDE) (UNKNOWN) [Concomitant]
  7. COREG (CARVEDILOL) (UNKNOWN) [Concomitant]

REACTIONS (2)
  - Full blood count decreased [None]
  - Platelet count decreased [None]
